FAERS Safety Report 6460850-7 (Version None)
Quarter: 2009Q4

REPORT INFORMATION
  Report Type: 
  Country: None (occurrence: None)
  Receive Date: 20091125
  Receipt Date: 20091125
  Transmission Date: 20100525
  Serious: Yes (Life-Threatening)
  Sender: FDA-Public Use
  Company Number: None

PATIENT
  Age: 76 Year
  Sex: Female
  Weight: 58 kg

DRUGS (2)
  1. CARVEDILOL [Suspect]
     Indication: CARDIAC FAILURE
     Dosage: 25MG Q12H PO
     Route: 048
     Dates: start: 20091103, end: 20091103
  2. CARVEDILOL [Suspect]
     Dosage: 3.125MG Q12H PO
     Route: 048
     Dates: start: 20091105, end: 20091105

REACTIONS (4)
  - ABDOMINAL PAIN UPPER [None]
  - BRADYCARDIA [None]
  - ELECTROMECHANICAL DISSOCIATION [None]
  - UNEVALUABLE EVENT [None]
